FAERS Safety Report 15663860 (Version 1)
Quarter: 2018Q4

REPORT INFORMATION
  Report Type: Spontaneous
  Country: US (occurrence: US)
  Receive Date: 20181128
  Receipt Date: 20181128
  Transmission Date: 20190205
  Serious: No
  Sender: FDA-Public Use
  Company Number: US-AUROBINDO-AUR-APL-2018-027640

PATIENT
  Sex: Female
  Weight: 86.17 kg

DRUGS (2)
  1. IBUPROFEN. [Concomitant]
     Active Substance: IBUPROFEN
     Indication: PAIN
     Dosage: 200 MILLIGRAM, AS NECESSARY
  2. LOSARTAN POTASSIUM / HYDROCHLOROTHIAZIDE 100MG +25 MG [Suspect]
     Active Substance: HYDROCHLOROTHIAZIDE\LOSARTAN POTASSIUM
     Indication: HYPERTENSION
     Dosage: 100/25 MG, ONCE A DAY
     Route: 048
     Dates: start: 2016

REACTIONS (7)
  - Stress [Unknown]
  - Headache [Unknown]
  - Weight decreased [Unknown]
  - Blood pressure increased [Unknown]
  - Eye irritation [Unknown]
  - Drug ineffective [Unknown]
  - Tension headache [Unknown]

NARRATIVE: CASE EVENT DATE: 2017
